FAERS Safety Report 6050965-X (Version None)
Quarter: 2009Q1

REPORT INFORMATION
  Report Type: 
  Country: None (occurrence: None)
  Receive Date: 20090126
  Receipt Date: 20090113
  Transmission Date: 20090719
  Serious: Yes (Death, Hospitalization)
  Sender: FDA-Public Use
  Company Number: US-ELI_LILLY_AND_COMPANY-US200605004414

PATIENT
  Sex: Male
  Weight: 162.5 kg

DRUGS (10)
  1. GEMCITABINE HCL [Suspect]
     Indication: NON-SMALL CELL LUNG CANCER
     Dosage: 1000 MG/M2, OTHER
     Route: 042
     Dates: start: 20060414
  2. DOCETAXEL [Suspect]
     Indication: NON-SMALL CELL LUNG CANCER
     Dosage: 75 MG/M2, OTHER
     Route: 042
     Dates: start: 20060414
  3. DEXAMETHASONE [Concomitant]
     Indication: PROPHYLAXIS
     Dosage: UNK, UNK
     Dates: start: 20060117, end: 20060514
  4. EPOETIN ALFA [Concomitant]
     Indication: ANAEMIA
     Dosage: UNK, UNK
     Dates: start: 20060403, end: 20060515
  5. MORPHINE [Concomitant]
     Indication: PAIN
     Dosage: UNK, UNK
     Dates: start: 20060113, end: 20060517
  6. OXYCODONE HYDROCHLORIDE W/PARACETAMOL [Concomitant]
     Indication: PAIN
     Dosage: 5 MG, UNK
     Dates: start: 20051122, end: 20060517
  7. RANITIDINE [Concomitant]
     Indication: PROPHYLAXIS
     Dosage: UNK, UNK
     Dates: start: 20051214, end: 20060517
  8. SENNOSIDE A [Concomitant]
     Indication: CONSTIPATION
     Dosage: UNK, UNK
     Dates: start: 20060113, end: 20060522
  9. ONDANSETRON [Concomitant]
     Indication: VOMITING
     Dates: start: 20060117, end: 20060517
  10. ALBUTEROL W/IPRATROPIUM [Concomitant]
     Indication: DYSPNOEA
     Dates: start: 20051128, end: 20060609

REACTIONS (6)
  - ACUTE RESPIRATORY DISTRESS SYNDROME [None]
  - ALVEOLITIS ALLERGIC [None]
  - ASTHENIA [None]
  - DEHYDRATION [None]
  - HYPONATRAEMIA [None]
  - PYREXIA [None]
